FAERS Safety Report 18360528 (Version 2)
Quarter: 2020Q4

REPORT INFORMATION
  Report Type: Report from Study
  Country: CA (occurrence: CA)
  Receive Date: 20201008
  Receipt Date: 20201108
  Transmission Date: 20210114
  Serious: Yes (Death, Hospitalization)
  Sender: FDA-Public Use
  Company Number: CA-ROCHE-2689595

PATIENT

DRUGS (1)
  1. RITUXIMAB. [Suspect]
     Active Substance: RITUXIMAB
     Indication: B-CELL LYMPHOMA
     Dosage: RITUXIMAB 2E100MG/10ML CA VL?RITUXIMAB 1E500MG/50ML CA VL?RITUXIMAB 1E1400MG/11.7ML CA VL
     Route: 042
     Dates: start: 20160804

REACTIONS (3)
  - Diarrhoea [Recovered/Resolved]
  - Dehydration [Recovered/Resolved]
  - Pneumonia [Fatal]

NARRATIVE: CASE EVENT DATE: 20160811
